FAERS Safety Report 19941785 (Version 1)
Quarter: 2021Q4

REPORT INFORMATION
  Report Type: Spontaneous
  Country: US (occurrence: US)
  Receive Date: 20211008
  Receipt Date: 20211008
  Transmission Date: 20220303
  Serious: Yes (Life-Threatening, Hospitalization)
  Sender: FDA-Public Use
  Company Number: None

PATIENT
  Age: 77 Year
  Sex: Male
  Weight: 113 kg

DRUGS (2)
  1. CASIRIVIMAB [Suspect]
     Active Substance: CASIRIVIMAB
     Indication: COVID-19
     Dates: start: 20211006, end: 20211006
  2. IMDEVIMAB [Suspect]
     Active Substance: IMDEVIMAB
     Indication: COVID-19 pneumonia
     Dates: start: 20211006, end: 20211006

REACTIONS (5)
  - Dyspnoea [None]
  - Dyspnoea [None]
  - Oxygen saturation decreased [None]
  - Respiratory failure [None]
  - Hypercapnia [None]

NARRATIVE: CASE EVENT DATE: 20211003
